FAERS Safety Report 7575529-8 (Version None)
Quarter: 2011Q2

REPORT INFORMATION
  Report Type: 
  Country: None (occurrence: None)
  Receive Date: 20110627
  Receipt Date: 20110613
  Transmission Date: 20111010
  Serious: Yes (Death, Other)
  Sender: FDA-Public Use
  Company Number: LT-GENENTECH-310119

PATIENT

DRUGS (2)
  1. METHYLPREDNISOLONE [Suspect]
     Indication: CHRONIC LYMPHOCYTIC LEUKAEMIA
     Dosage: 1 G/M2, QDX5D/21DC
     Route: 065
  2. RITUXIMAB [Suspect]
     Indication: CHRONIC LYMPHOCYTIC LEUKAEMIA
     Dosage: UNK UNK, Q21D
     Route: 042

REACTIONS (11)
  - SUDDEN DEATH [None]
  - HYPERGLYCAEMIA [None]
  - THROMBOCYTOPENIA [None]
  - CARDIAC FAILURE CONGESTIVE [None]
  - INFECTION [None]
  - FATIGUE [None]
  - LUNG INFECTION [None]
  - FEBRILE NEUTROPENIA [None]
  - HYPERKALAEMIA [None]
  - ANAEMIA [None]
  - NEUTROPENIA [None]
